FAERS Safety Report 19363606 (Version 4)
Quarter: 2021Q3

REPORT INFORMATION
  Report Type: Report from Study
  Country: CA (occurrence: CA)
  Receive Date: 20210603
  Receipt Date: 20210809
  Transmission Date: 20211014
  Serious: Yes (Other)
  Sender: FDA-Public Use
  Company Number: CA-JNJFOC-20210600351

PATIENT
  Age: 64 Year
  Sex: Male
  Weight: 115.5 kg

DRUGS (2)
  1. REMICADE [Suspect]
     Active Substance: INFLIXIMAB
     Indication: PSORIASIS
     Dosage: LAST TREATMENT WAS RECEIVED ON 31?MAY?2021
     Route: 042
     Dates: start: 20150402
  2. COVID?19 VACCINE [Concomitant]
     Indication: COVID-19 PROPHYLAXIS
     Route: 065
     Dates: start: 20210629, end: 20210629

REACTIONS (4)
  - Weight decreased [Not Recovered/Not Resolved]
  - Fear [Unknown]
  - Anxiety [Not Recovered/Not Resolved]
  - Skin cancer [Recovering/Resolving]

NARRATIVE: CASE EVENT DATE: 202104
